FAERS Safety Report 16204479 (Version 5)
Quarter: 2020Q1

REPORT INFORMATION
  Report Type: Report from Study
  Country: US (occurrence: US)
  Receive Date: 20190416
  Receipt Date: 20200219
  Transmission Date: 20200409
  Serious: Yes (Hospitalization)
  Sender: FDA-Public Use
  Company Number: US-ACTELION-A-NJ2018-173075

PATIENT
  Age: 51 Year
  Sex: Female
  Weight: 77.1 kg

DRUGS (11)
  1. VELETRI [Suspect]
     Active Substance: EPOPROSTENOL
     Dosage: 9.5 NG/KG, PER MIN
     Route: 042
  2. VELETRI [Suspect]
     Active Substance: EPOPROSTENOL
     Dosage: 10.7 NG/KG, PER MIN
     Route: 042
  3. VELETRI [Suspect]
     Active Substance: EPOPROSTENOL
     Dosage: 15.3 NG/KG, PER MIN
     Route: 042
  4. METOLAZONE. [Suspect]
     Active Substance: METOLAZONE
     Indication: PRODUCT USED FOR UNKNOWN INDICATION
     Route: 065
  5. VELETRI [Suspect]
     Active Substance: EPOPROSTENOL
     Indication: PULMONARY ARTERIAL HYPERTENSION
     Dosage: 15.5 NG/KG, PER MIN
     Route: 042
  6. VELETRI [Suspect]
     Active Substance: EPOPROSTENOL
     Dosage: 13.5 NG/KG, PER MIN
     Route: 042
  7. VELETRI [Suspect]
     Active Substance: EPOPROSTENOL
     Dosage: 11.5 NG/KG, PER MIN
     Route: 042
  8. DIGOXIN. [Suspect]
     Active Substance: DIGOXIN
     Indication: PRODUCT USED FOR UNKNOWN INDICATION
     Route: 065
  9. OPSUMIT [Suspect]
     Active Substance: MACITENTAN
     Indication: PULMONARY ARTERIAL HYPERTENSION
     Dosage: 10 MG, QD
     Route: 048
  10. REVATIO [Concomitant]
     Active Substance: SILDENAFIL CITRATE
  11. VELETRI [Suspect]
     Active Substance: EPOPROSTENOL
     Dosage: 16.3 NG/KG, PER MIN
     Route: 042

REACTIONS (28)
  - Catheter site irritation [Unknown]
  - Pain in extremity [Unknown]
  - Catheter site haemorrhage [Unknown]
  - Ear pain [Unknown]
  - Weight increased [Unknown]
  - Vomiting [Unknown]
  - Catheter site erythema [Unknown]
  - Catheter site discharge [Unknown]
  - Catheter site pruritus [Unknown]
  - Pain in jaw [Unknown]
  - Feeling hot [Unknown]
  - Nausea [Unknown]
  - Fatigue [Unknown]
  - Peripheral swelling [Unknown]
  - Blood potassium decreased [Unknown]
  - Insomnia [Unknown]
  - Palpitations [Unknown]
  - Somnolence [Unknown]
  - Oxygen consumption [Unknown]
  - Dizziness [Unknown]
  - Ear infection [Unknown]
  - Headache [Unknown]
  - Malaise [Unknown]
  - Device leakage [Unknown]
  - Chills [Unknown]
  - Pain [Unknown]
  - Presyncope [Unknown]
  - Infection [Unknown]

NARRATIVE: CASE EVENT DATE: 201805
